FAERS Safety Report 6241156-8 (Version None)
Quarter: 2009Q2

REPORT INFORMATION
  Report Type: 
  Country: None (occurrence: None)
  Receive Date: 20090623
  Receipt Date: 20090619
  Transmission Date: 20091009
  Serious: Yes (Death)
  Sender: FDA-Public Use
  Company Number: US-BRISTOL-MYERS SQUIBB COMPANY-14672380

PATIENT
  Age: 56 Year
  Sex: Male

DRUGS (2)
  1. ORENCIA [Suspect]
     Indication: RHEUMATOID ARTHRITIS
     Dosage: LAST INFUSION 30JAN2009
     Dates: start: 20080201
  2. LEVAQUIN [Concomitant]

REACTIONS (2)
  - DEATH [None]
  - SINUSITIS [None]
